FAERS Safety Report 24638756 (Version 1)
Quarter: 2024Q4

REPORT INFORMATION
  Report Type: Spontaneous
  Country: US (occurrence: US)
  Receive Date: 20241119
  Receipt Date: 20241119
  Transmission Date: 20250115
  Serious: No
  Sender: PURDUE
  Company Number: US-PURDUE PHARMA-USA-2024-0313357

PATIENT
  Sex: Female

DRUGS (1)
  1. DILAUDID [Suspect]
     Active Substance: HYDROMORPHONE HYDROCHLORIDE
     Indication: Product used for unknown indication
     Dosage: 1,367 MG(INCLUDING 1 MG/ML  AND 2 MG/ML)
     Route: 048

REACTIONS (2)
  - Drug diversion [Recovered/Resolved]
  - Prescription drug used without a prescription [Unknown]

NARRATIVE: CASE EVENT DATE: 20210101
